FAERS Safety Report 19950323 (Version 1)
Quarter: 2021Q4

REPORT INFORMATION
  Report Type: Spontaneous
  Country: US (occurrence: US)
  Receive Date: 20211013
  Receipt Date: 20211013
  Transmission Date: 20220303
  Serious: No
  Sender: FDA-Public Use
  Company Number: None

PATIENT
  Sex: Male

DRUGS (2)
  1. SUMATRIPTAN [Suspect]
     Active Substance: SUMATRIPTAN
  2. TOPIRAMATE [Suspect]
     Active Substance: TOPIRAMATE

REACTIONS (2)
  - Migraine [None]
  - Treatment failure [None]
